FAERS Safety Report 5391699-4 (Version None)
Quarter: 2007Q3

REPORT INFORMATION
  Report Type: 
  Country: None (occurrence: None)
  Receive Date: 20070717
  Receipt Date: 20070702
  Transmission Date: 20080115
  Serious: Yes (Other)
  Sender: FDA-Public Use
  Company Number: 2007S1000178

PATIENT
  Sex: Female

DRUGS (2)
  1. ACITRETIN [Suspect]
     Indication: DRUG USE FOR UNKNOWN INDICATION
     Dosage: PO
     Route: 047
     Dates: start: 20070501
  2. TEGRETOL [Concomitant]

REACTIONS (3)
  - CONVULSION [None]
  - DRUG DOSE OMISSION [None]
  - DRUG INTERACTION [None]
